FAERS Safety Report 4665237-5 (Version None)
Quarter: 2005Q2

REPORT INFORMATION
  Report Type: 
  Country: None (occurrence: None)
  Receive Date: 20050517
  Receipt Date: 20050502
  Transmission Date: 20051028
  Serious: Yes (Hospitalization)
  Sender: FDA-Public Use
  Company Number: US_0505117281

PATIENT
  Age: 27 Year
  Sex: Male
  Weight: 79 kg

DRUGS (6)
  1. GEMCITABINE HYDROCHLORIDE-IV (GEMCITABINE) [Suspect]
     Indication: RENAL CELL CARCINOMA STAGE UNSPECIFIED
     Dosage: 750 MG/M2 OTHER
     Route: 050
     Dates: start: 20050303
  2. OTHER PHARMA INVESTIGATIONAL AGENT [Suspect]
     Indication: RENAL CELL CARCINOMA STAGE UNSPECIFIED
     Dosage: 37.5 MG OTHER
     Route: 050
     Dates: start: 20050304
  3. PROCHLORPERAZINE [Concomitant]
  4. ONDANSETRON [Concomitant]
  5. OXYCODONE HCL [Concomitant]
  6. OXYCODONE HCL [Concomitant]

REACTIONS (3)
  - ABDOMINAL PAIN [None]
  - LIPASE INCREASED [None]
  - TACHYCARDIA [None]
